FAERS Safety Report 11865526 (Version 1)
Quarter: 2015Q4

REPORT INFORMATION
  Report Type: Spontaneous
  Country: US (occurrence: US)
  Receive Date: 20151223
  Receipt Date: 20151223
  Transmission Date: 20160305
  Serious: No
  Sender: FDA-Public Use
  Company Number: US-WATSON-2015-03577

PATIENT
  Sex: Female

DRUGS (1)
  1. LEVORA [Suspect]
     Active Substance: ETHINYL ESTRADIOL\LEVONORGESTREL
     Indication: ORAL CONTRACEPTION
     Dosage: UNK, UNKNOWN
     Route: 065

REACTIONS (3)
  - Metrorrhagia [Unknown]
  - Muscle spasms [Unknown]
  - Drug ineffective [Unknown]
